FAERS Safety Report 5373950-X (Version None)
Quarter: 2007Q2

REPORT INFORMATION
  Report Type: 
  Country: None (occurrence: None)
  Receive Date: 20070627
  Receipt Date: 20070622
  Transmission Date: 20071010
  Serious: Yes (Death)
  Sender: FDA-Public Use
  Company Number: TPA2007A01163

PATIENT
  Age: 4 Decade
  Sex: Male

DRUGS (2)
  1. ACTOS [Suspect]
     Dosage: PER ORAL
     Route: 048
  2. ZYPREXA [Suspect]

REACTIONS (4)
  - ASPIRATION [None]
  - HYPERPHAGIA [None]
  - POLYDIPSIA [None]
  - VOMITING [None]
